FAERS Safety Report 4807000-8 (Version None)
Quarter: 2005Q4

REPORT INFORMATION
  Report Type: 
  Country: None (occurrence: None)
  Receive Date: 20051024
  Receipt Date: 20051012
  Transmission Date: 20060501
  Serious: Yes (Hospitalization, Other)
  Sender: FDA-Public Use
  Company Number: US-JNJFOC-20051000967

PATIENT
  Sex: Female
  Weight: 53.98 kg

DRUGS (4)
  1. REMICADE [Suspect]
     Route: 042
  2. REMICADE [Suspect]
     Indication: CROHN'S DISEASE
     Route: 042
  3. VEXISAXEN [Concomitant]
     Indication: CROHN'S DISEASE
  4. FISH OIL [Concomitant]

REACTIONS (9)
  - ARTHRALGIA [None]
  - BRAIN OEDEMA [None]
  - CONVULSION [None]
  - HEADACHE [None]
  - HEART RATE DECREASED [None]
  - HYPERSENSITIVITY [None]
  - LOSS OF CONSCIOUSNESS [None]
  - MOVEMENT DISORDER [None]
  - SEPSIS [None]
